FAERS Safety Report 17554211 (Version 3)
Quarter: 2025Q3

REPORT INFORMATION
  Report Type: Report from Study
  Country: EU (occurrence: EU)
  Receive Date: 20200318
  Receipt Date: 20250729
  Transmission Date: 20251020
  Serious: Yes (Congenital Anomaly, Other)
  Sender: TEVA
  Company Number: EU-TEVA-2020-DE-1203922

PATIENT

DRUGS (1)
  1. LOSARTAN [Suspect]
     Active Substance: LOSARTAN
     Indication: Product used for unknown indication
     Route: 064

REACTIONS (2)
  - Foetal disorder [Recovered/Resolved]
  - Foetal exposure during pregnancy [Unknown]
